FAERS Safety Report 9787570 (Version 1)
Quarter: 2013Q4

REPORT INFORMATION
  Report Type: Spontaneous
  Country: IT (occurrence: None)
  Receive Date: 20131224
  Receipt Date: 20131224
  Transmission Date: 20140711
  Serious: Yes (Other)
  Sender: FDA-Public Use
  Company Number: AUR-APL-2013-10549

PATIENT
  Age: 66 Year
  Sex: Male

DRUGS (1)
  1. METFORMIN [Suspect]
     Indication: DIABETES MELLITUS
     Dosage: 1000 MG (1000 MG, 1 IN 1 D) ORAL
     Route: 048
     Dates: start: 20131030, end: 20131102

REACTIONS (2)
  - Dysentery [None]
  - Product substitution issue [None]
